FAERS Safety Report 8500387-4 (Version None)
Quarter: 2012Q3

REPORT INFORMATION
  Report Type: 
  Country: None (occurrence: None)
  Receive Date: 20120710
  Receipt Date: 20120619
  Transmission Date: 20120928
  Serious: Yes (Other)
  Sender: FDA-Public Use
  Company Number: FR-FRI-1000036928

PATIENT
  Sex: Female

DRUGS (6)
  1. ESCITALOPRAM [Suspect]
     Indication: DEPRESSION
     Dosage: 10 MG
     Route: 048
     Dates: start: 20120215
  2. ESCITALOPRAM [Suspect]
     Dosage: 20 MG
     Route: 048
  3. EFFEXOR [Suspect]
     Indication: DEPRESSION
     Dosage: 150 MG
     Dates: start: 20110919, end: 20120214
  4. PRAZEPAM [Concomitant]
     Indication: ANXIETY
     Dosage: 10 MG AS NEEDED
     Route: 048
     Dates: start: 20110713
  5. ESCITALOPRAM [Suspect]
     Dosage: 15 MG
     Route: 048
  6. AMITRIPTYLINE HCL [Suspect]
     Indication: DEPRESSION
     Route: 048
     Dates: start: 20110601, end: 20110915

REACTIONS (1)
  - PSORIASIS [None]
